FAERS Safety Report 10553943 (Version 1)
Quarter: 2014Q4

REPORT INFORMATION
  Report Type: Spontaneous
  Country: US (occurrence: None)
  Receive Date: 20141023
  Receipt Date: 20141023
  Transmission Date: 20150529
  Serious: No
  Sender: FDA-Public Use
  Company Number: AP356-01231-SPO-US

PATIENT
  Age: 62 Year
  Sex: Female
  Weight: 167 kg

DRUGS (4)
  1. HIGH BLOOD PRESSURE MEDICATION ( ANTIHYPERTENSIVES) [Concomitant]
  2. STRATTERA [Suspect]
     Active Substance: ATOMOXETINE HYDROCHLORIDE
     Indication: ATTENTION DEFICIT/HYPERACTIVITY DISORDER
     Dosage: ON SATURDAY AND SUNDAYS
  3. LEVOTHYROXINE [Concomitant]
     Active Substance: LEVOTHYROXINE
  4. BELVIQ [Suspect]
     Active Substance: LORCASERIN HYDROCHLORIDE
     Indication: WEIGHT DECREASED
     Dosage: 10 MG, 1 IN 1 D, ORAL
     Route: 048
     Dates: start: 201407

REACTIONS (8)
  - Irritability [None]
  - Tachyphrenia [None]
  - Blood glucose decreased [None]
  - Insomnia [None]
  - Dizziness [None]
  - Intentional underdose [None]
  - Fatigue [None]
  - Weight increased [None]

NARRATIVE: CASE EVENT DATE: 201407
